FAERS Safety Report 5667795-0 (Version None)
Quarter: 2008Q1

REPORT INFORMATION
  Report Type: 
  Country: None (occurrence: None)
  Receive Date: 20080315
  Receipt Date: 20080201
  Transmission Date: 20080703
  Serious: No
  Sender: FDA-Public Use
  Company Number: US-ABBOTT-08P-163-0436337-00

PATIENT
  Sex: Male
  Weight: 181.6 kg

DRUGS (5)
  1. HUMIRA [Suspect]
     Indication: CROHN'S DISEASE
     Route: 058
     Dates: start: 20080131
  2. PREDNISONE [Concomitant]
     Indication: CROHN'S DISEASE
     Route: 048
  3. ZONISAMIDE [Concomitant]
     Indication: NEUROPATHY PERIPHERAL
     Route: 048
  4. PREGABALIN [Concomitant]
     Indication: NEUROPATHY PERIPHERAL
     Route: 048
  5. VITAMIN CAP [Concomitant]
     Indication: MEDICAL DIET
     Route: 048

REACTIONS (1)
  - HEADACHE [None]
